FAERS Safety Report 4368154-3 (Version None)
Quarter: 2004Q2

REPORT INFORMATION
  Report Type: 
  Country: None (occurrence: None)
  Receive Date: 20040602
  Receipt Date: 20040504
  Transmission Date: 20050107
  Serious: Yes (Other)
  Sender: FDA-Public Use
  Company Number: PHEH2004US04921

PATIENT
  Age: 46 Year
  Sex: Female

DRUGS (5)
  1. CLOZARIL [Suspect]
     Indication: SCHIZOPHRENIA
     Dosage: 600 MG/DAY
     Route: 048
     Dates: start: 19940101, end: 20040407
  2. RISPERDAL [Concomitant]
  3. PROSCAR [Concomitant]
  4. CYCLOPHOSPHAMIDE [Concomitant]
  5. EPOGEN [Concomitant]

REACTIONS (3)
  - BREAST CANCER [None]
  - LEUKOPENIA [None]
  - NEUTROPENIA [None]
